FAERS Safety Report 23882933 (Version 1)
Quarter: 2024Q2

REPORT INFORMATION
  Report Type: Other
  Country: US (occurrence: US)
  Receive Date: 20240522
  Receipt Date: 20240522
  Transmission Date: 20240716
  Serious: Yes (Other)
  Sender: FDA-Public Use
  Company Number: US-Appco Pharma LLC-2157283

PATIENT
  Sex: Female

DRUGS (4)
  1. HYDROXYCHLOROQUINE SULFATE [Suspect]
     Active Substance: HYDROXYCHLOROQUINE SULFATE
     Indication: Systemic lupus erythematosus
  2. PREDNISONE [Suspect]
     Active Substance: PREDNISONE
     Route: 065
  3. BELIMUMAB [Suspect]
     Active Substance: BELIMUMAB
     Route: 065
  4. AZATHIOPRINE [Suspect]
     Active Substance: AZATHIOPRINE
     Route: 065

REACTIONS (1)
  - Drug ineffective [Unknown]
